FAERS Safety Report 4471070-X (Version None)
Quarter: 2004Q4

REPORT INFORMATION
  Report Type: 
  Country: None (occurrence: None)
  Receive Date: 20041011
  Receipt Date: 20040930
  Transmission Date: 20050328
  Serious: Yes (Hospitalization, Disabling, Other)
  Sender: FDA-Public Use
  Company Number: JP-JNJFOC-20031205150

PATIENT
  Sex: Male
  Weight: 56.5 kg

DRUGS (17)
  1. REMICADE [Suspect]
     Route: 041
  2. REMICADE [Suspect]
     Route: 041
  3. REMICADE [Suspect]
     Route: 041
  4. REMICADE [Suspect]
     Indication: RHEUMATOID ARTHRITIS
     Route: 041
  5. RHEUMATREX [Concomitant]
     Route: 049
  6. RHEUMATREX [Concomitant]
     Route: 049
  7. RHEUMATREX [Concomitant]
     Route: 049
  8. RHEUMATREX [Concomitant]
     Indication: RHEUMATOID ARTHRITIS
     Route: 049
  9. PREDNISOLONE [Concomitant]
     Route: 049
  10. PREDNISOLONE [Concomitant]
     Route: 049
  11. PREDNISOLONE [Concomitant]
     Route: 049
  12. PREDNISOLONE [Concomitant]
     Route: 049
  13. PREDNISOLONE [Concomitant]
     Indication: RHEUMATOID ARTHRITIS
     Route: 049
  14. AZULFIDINE [Concomitant]
     Indication: RHEUMATOID ARTHRITIS
     Route: 049
  15. LOXONIN [Concomitant]
     Route: 049
  16. LOXONIN [Concomitant]
     Indication: RHEUMATOID ARTHRITIS
     Route: 049
  17. MILTAX [Concomitant]
     Indication: RHEUMATOID ARTHRITIS
     Dosage: 20 PACKETS VIA A POULTICE

REACTIONS (6)
  - FEELING ABNORMAL [None]
  - HYPERCHOLESTEROLAEMIA [None]
  - MALAISE [None]
  - PLEURISY [None]
  - PULMONARY TUBERCULOSIS [None]
  - PYREXIA [None]
